FAERS Safety Report 5648449-3 (Version None)
Quarter: 2008Q1

REPORT INFORMATION
  Report Type: 
  Country: None (occurrence: None)
  Receive Date: 20080304
  Receipt Date: 20080225
  Transmission Date: 20080703
  Serious: Yes (Other)
  Sender: FDA-Public Use
  Company Number: PHEH2006US02261

PATIENT
  Age: 69 Year
  Sex: Female
  Weight: 58.6 kg

DRUGS (10)
  1. AREDIA [Suspect]
     Indication: BREAST CANCER
     Dosage: 90MG IV Q3 WEEKS
     Route: 042
     Dates: start: 20010701, end: 20011101
  2. ZOMETA [Suspect]
     Indication: METASTASES TO BONE
     Dosage: 4MG IV Q4WEEKS
     Route: 042
     Dates: start: 20011129, end: 20050712
  3. ZOMETA [Suspect]
     Dosage: 4MG IV Q4WEEKS
     Route: 042
     Dates: start: 20041124, end: 20050712
  4. PRILOSEC [Concomitant]
     Dosage: 20 MG, QD
     Route: 048
  5. ZIAC [Concomitant]
  6. FEMARA [Concomitant]
     Indication: BREAST CANCER
     Dosage: 2.5 MG, QD
     Route: 048
     Dates: start: 20010401
  7. VALIUM [Concomitant]
  8. AROMASIN [Concomitant]
  9. XELODA [Concomitant]
     Indication: BREAST CANCER
  10. PROPULSID [Concomitant]

REACTIONS (39)
  - ACTINOMYCOSIS [None]
  - BONE DEBRIDEMENT [None]
  - BONE DISORDER [None]
  - BONE OPERATION [None]
  - BREATH ODOUR [None]
  - CHRONIC SINUSITIS [None]
  - COMPUTERISED TOMOGRAM ABNORMAL [None]
  - DENTAL CARIES [None]
  - DENTAL DISCOMFORT [None]
  - DENTAL FISTULA [None]
  - DEPRESSED MOOD [None]
  - DRY MOUTH [None]
  - EMOTIONAL DISTRESS [None]
  - ETHMOID SINUS SURGERY [None]
  - FACE INJURY [None]
  - FATIGUE [None]
  - HYPERBARIC OXYGEN THERAPY [None]
  - IMPAIRED HEALING [None]
  - INFECTION [None]
  - JAW OPERATION [None]
  - LIFE EXPECTANCY SHORTENED [None]
  - LIP BLISTER [None]
  - METASTASES TO LIVER [None]
  - METASTASES TO SPINE [None]
  - MOUTH ULCERATION [None]
  - ORAL DISORDER [None]
  - ORAL INTAKE REDUCED [None]
  - ORAL PAIN [None]
  - OSTEONECROSIS [None]
  - PAIN IN JAW [None]
  - PRIMARY SEQUESTRUM [None]
  - PYOGENIC GRANULOMA [None]
  - RADIOTHERAPY [None]
  - RHINITIS [None]
  - SINUS ANTROSTOMY [None]
  - SINUS OPERATION [None]
  - TOOTH EXTRACTION [None]
  - TOOTH REPAIR [None]
  - WOUND DEHISCENCE [None]
